FAERS Safety Report 9330171 (Version 3)
Quarter: 2013Q2

REPORT INFORMATION
  Report Type: Spontaneous
  Country: US (occurrence: US)
  Receive Date: 20130604
  Receipt Date: 20130620
  Transmission Date: 20140414
  Serious: Yes (Death, Life-Threatening, Hospitalization, Other)
  Sender: FDA-Public Use
  Company Number: US-MERCK-1305USA017918

PATIENT
  Age: 72 Year
  Sex: Male
  Weight: 74.83 kg

DRUGS (12)
  1. JANUVIA [Suspect]
     Indication: TYPE 2 DIABETES MELLITUS
     Dosage: 100 MG, DAILY
     Route: 048
     Dates: start: 20130204
  2. METFORMIN HYDROCHLORIDE [Concomitant]
     Dosage: 1 TABLET, BID
     Route: 048
  3. AMARYL [Concomitant]
     Dosage: 2 TABLETS, QAM
     Route: 048
  4. AMLODIPINE [Concomitant]
     Dosage: 1 TABLET, DAILY
     Route: 048
  5. KEPPRA [Concomitant]
     Dosage: 500 MG, BID
     Route: 048
  6. PRINIVIL [Concomitant]
     Dosage: 1 TABLET QD
     Route: 048
  7. ZOCOR [Concomitant]
     Dosage: 1 TABLET AT BEDTIME
     Route: 048
  8. RANITIDINE [Concomitant]
     Indication: DYSPEPSIA
     Dosage: 1 CAPSULE QD
     Route: 048
  9. RANITIDINE [Concomitant]
     Dosage: 1 BID DEPENDS ON HEARTBURN
     Route: 048
  10. ASPIRIN [Concomitant]
     Dosage: 1 DF, QOD
  11. MIRALAX [Concomitant]
  12. GLIMEPIRIDE [Concomitant]
     Dosage: 80 MG DAILY

REACTIONS (9)
  - Pancreatitis necrotising [Fatal]
  - Pancreatic pseudocyst [Unknown]
  - Constipation [Unknown]
  - Orthopnoea [Unknown]
  - Nocturia [Unknown]
  - Fatigue [Unknown]
  - Hemiparesis [Unknown]
  - Eyelid ptosis [Unknown]
  - Oedema [Unknown]
